FAERS Safety Report 7298149-1 (Version None)
Quarter: 2011Q1

REPORT INFORMATION
  Report Type: 
  Country: None (occurrence: None)
  Receive Date: 20110217
  Receipt Date: 20110204
  Transmission Date: 20110831
  Serious: Yes (Other)
  Sender: FDA-Public Use
  Company Number: US-ELI_LILLY_AND_COMPANY-US201102002301

PATIENT
  Sex: Female

DRUGS (19)
  1. FORTEO [Suspect]
     Dosage: 20 UG, QOD
     Route: 065
     Dates: start: 20110126
  2. VALTREX [Concomitant]
     Indication: HERPES ZOSTER
     Dosage: 1 G, DAILY (1/D)
  3. VITAMIN D [Concomitant]
  4. LOVAZA [Concomitant]
  5. FORTEO [Suspect]
     Indication: OSTEOPOROSIS
     Dosage: 20 UG, 2/W
     Route: 065
     Dates: start: 20101105, end: 20101112
  6. SYNTHROID [Concomitant]
  7. PREDNISONE TAB [Concomitant]
  8. ASCORBIC ACID [Concomitant]
  9. CO Q10 [Concomitant]
  10. FORTEO [Suspect]
     Dosage: 20 UG, 3/W
     Route: 065
     Dates: start: 20101113, end: 20101119
  11. CALCIUM CITRATE [Concomitant]
  12. VITAMIN E /001105/ [Concomitant]
  13. FORTEO [Suspect]
     Dosage: 20 UG, 4/W
     Route: 065
     Dates: start: 20101120, end: 20101126
  14. FORTEO [Suspect]
     Dosage: 20 UG, UNKNOWN
     Route: 065
     Dates: start: 20101227, end: 20101229
  15. FORTEO [Suspect]
     Dosage: 20 UG, UNKNOWN
     Route: 065
     Dates: start: 20101127, end: 20101220
  16. DIGOXIN [Concomitant]
  17. ASPIRIN [Concomitant]
  18. PLAVIX [Concomitant]
  19. MULTI-VITAMIN [Concomitant]

REACTIONS (12)
  - CHEST PAIN [None]
  - PALPITATIONS [None]
  - INCORRECT STORAGE OF DRUG [None]
  - SUPRAVENTRICULAR EXTRASYSTOLES [None]
  - HEART RATE IRREGULAR [None]
  - VENTRICULAR EXTRASYSTOLES [None]
  - ARRHYTHMIA [None]
  - EXPIRED DRUG ADMINISTERED [None]
  - SINUS ARREST [None]
  - ATRIAL FIBRILLATION [None]
  - FATIGUE [None]
  - WALKING AID USER [None]
